FAERS Safety Report 16014082 (Version 1)
Quarter: 2019Q1

REPORT INFORMATION
  Report Type: Report from Study
  Country: CA (occurrence: CA)
  Receive Date: 20190227
  Receipt Date: 20190227
  Transmission Date: 20190418
  Serious: Yes (Death, Other)
  Sender: FDA-Public Use
  Company Number: CA-PFIZER INC-2019081516

PATIENT
  Age: 36 Year
  Sex: Male

DRUGS (9)
  1. BISOPROLOL [Concomitant]
     Active Substance: BISOPROLOL
     Indication: NEOPLASM
     Dosage: 10 MG, 1X/DAY
     Route: 048
  2. SUTENT [Concomitant]
     Active Substance: SUNITINIB MALATE
     Dosage: UNK
     Route: 065
  3. SANDOSTATIN [Suspect]
     Active Substance: OCTREOTIDE ACETATE
     Dosage: 60 MG, MONTHLY
     Route: 030
  4. SANDOSTATIN [Suspect]
     Active Substance: OCTREOTIDE ACETATE
     Dosage: 20 MG, MONTHLY
     Route: 030
  5. DILAUDID [Concomitant]
     Active Substance: HYDROMORPHONE HYDROCHLORIDE
     Dosage: UNK
     Route: 065
  6. SANDOSTATIN [Suspect]
     Active Substance: OCTREOTIDE ACETATE
     Indication: CARCINOID TUMOUR PULMONARY
     Dosage: 40 MG, MONTHLY
     Route: 030
  7. SANDOSTATIN [Suspect]
     Active Substance: OCTREOTIDE ACETATE
     Indication: CARCINOID TUMOUR PULMONARY
     Dosage: 100 UG, 3X/DAY
     Route: 058
  8. NAPROSYN [Concomitant]
     Active Substance: NAPROXEN
     Dosage: UNK
     Route: 065
  9. CEFTRIAXONE SODIUM. [Suspect]
     Active Substance: CEFTRIAXONE SODIUM
     Indication: BACTERIAL INFECTION
     Dosage: UNK
     Route: 065

REACTIONS (23)
  - Abdominal pain upper [Unknown]
  - Neutrophil count decreased [Unknown]
  - Blood pressure diastolic increased [Unknown]
  - Erythema [Unknown]
  - Faeces soft [Unknown]
  - Heart rate increased [Unknown]
  - Death [Fatal]
  - Blood pressure systolic increased [Unknown]
  - Injection site pain [Unknown]
  - Muscle injury [Unknown]
  - Neoplasm of thymus [Unknown]
  - Pericarditis [Unknown]
  - Influenza [Unknown]
  - Chest pain [Unknown]
  - Weight decreased [Unknown]
  - Bacterial infection [Unknown]
  - Blood pressure increased [Unknown]
  - Chills [Unknown]
  - Hypersensitivity [Unknown]
  - Needle issue [Unknown]
  - Cough [Unknown]
  - Headache [Unknown]
  - Tremor [Unknown]
